FAERS Safety Report 23498495 (Version 1)
Quarter: 2024Q1

REPORT INFORMATION
  Report Type: Spontaneous
  Country: US (occurrence: US)
  Receive Date: 20240208
  Receipt Date: 20240208
  Transmission Date: 20240410
  Serious: No
  Sender: FDA-Public Use
  Company Number: US-009507513-2401USA006630

PATIENT
  Age: 57 Year
  Sex: Male

DRUGS (4)
  1. NOXAFIL [Suspect]
     Active Substance: POSACONAZOLE
     Indication: Exserohilum infection
     Dosage: UNK
     Route: 048
     Dates: start: 202306
  2. ISAVUCONAZOLE [Concomitant]
     Active Substance: ISAVUCONAZOLE
     Indication: Exserohilum infection
     Dosage: UNK
     Dates: start: 2023, end: 202306
  3. CEFEPIME [Concomitant]
     Active Substance: CEFEPIME HYDROCHLORIDE
     Indication: Exserohilum infection
     Dosage: UNK
     Dates: start: 20230610, end: 202306
  4. AMPHOTERICIN B [Concomitant]
     Active Substance: AMPHOTERICIN B
     Indication: Exserohilum infection
     Dosage: UNK
     Dates: start: 202306

REACTIONS (1)
  - Product use in unapproved indication [Unknown]

NARRATIVE: CASE EVENT DATE: 20230601
